FAERS Safety Report 20841026 (Version 2)
Quarter: 2022Q2

REPORT INFORMATION
  Report Type: Spontaneous
  Country: US (occurrence: US)
  Receive Date: 20220517
  Receipt Date: 20220601
  Transmission Date: 20220721
  Serious: No
  Sender: FDA-Public Use
  Company Number: US-PFIZER INC-202101600483

PATIENT
  Age: 54 Year
  Sex: Male
  Weight: 136.08 kg

DRUGS (4)
  1. DILANTIN [Suspect]
     Active Substance: PHENYTOIN
     Indication: Epilepsy
     Dosage: 500 MG, DAILY (5 CAPSULES A DAY/100 MG (TAKE 2 PO Q AM AND 3 PO Q PM)
     Route: 048
  2. DILANTIN [Suspect]
     Active Substance: PHENYTOIN
     Indication: Seizure
  3. PHENYTOIN [Concomitant]
     Active Substance: PHENYTOIN
     Dosage: UNK
  4. LUMINAL [PHENOBARBITAL] [Concomitant]
     Dosage: 97.2 MG, 2X/DAY(97.2MG BID)

REACTIONS (2)
  - Therapeutic product effect incomplete [Unknown]
  - Anticonvulsant drug level abnormal [Unknown]

NARRATIVE: CASE EVENT DATE: 20210907
